FAERS Safety Report 9245506 (Version 1)
Quarter: 2013Q1

REPORT INFORMATION
  Report Type: Spontaneous
  Country: US (occurrence: None)
  Receive Date: 20121130
  Receipt Date: 20121130
  Transmission Date: 20140127
  Serious: Yes (Other)
  Sender: FDA-Public Use
  Company Number: 347122

PATIENT
  Age: 64 Year
  Sex: Male
  Weight: 104.3 kg

DRUGS (8)
  1. NOVOLOG [Suspect]
     Indication: INSULIN RESISTANT DIABETES
     Dosage: SLIDING SCALE
     Route: 058
  2. NOVOLOG [Suspect]
     Dosage: SLIDING SCALE
     Route: 058
  3. FINASTERIDE [Concomitant]
  4. INDAPAMIDE [Concomitant]
  5. AMLODIPINE [Concomitant]
  6. LIPITOR [Concomitant]
  7. LEVOXYL [Concomitant]
  8. AVAPRO [Concomitant]

REACTIONS (3)
  - Incorrect dose administered [None]
  - Blood glucose increased [None]
  - Hypoglycaemic unconsciousness [None]
